FAERS Safety Report 23288397 (Version 1)
Quarter: 2023Q4

REPORT INFORMATION
  Report Type: Spontaneous
  Country: BE (occurrence: None)
  Receive Date: 20231212
  Receipt Date: 20231212
  Transmission Date: 20240109
  Serious: Yes (Other)
  Sender: FDA-Public Use
  Company Number: 2023A279575

PATIENT

DRUGS (5)
  1. DAPAGLIFLOZIN [Suspect]
     Active Substance: DAPAGLIFLOZIN
     Route: 048
  2. 1-ALPHA LEO [Concomitant]
     Indication: Vitamin D deficiency
     Route: 048
     Dates: start: 20230523
  3. FENOTEROL HYDROBROMIDE [Concomitant]
     Active Substance: FENOTEROL HYDROBROMIDE
     Indication: Pneumonia
     Dosage: 50/20 UG PER DOSE (0.1 UNIT) FOUR TIMES DAILY
     Route: 055
     Dates: start: 20230924
  4. ENTRESTO [Concomitant]
     Active Substance: SACUBITRIL\VALSARTAN
     Indication: Cardiac failure
     Dosage: 24/26 MG 0.5 TABLET TWICE DAILY
     Route: 048
     Dates: start: 20230522, end: 20231004
  5. SODIUM BICARBONATE [Concomitant]
     Active Substance: SODIUM BICARBONATE
     Indication: Dehydration
     Route: 048
     Dates: start: 20230920

REACTIONS (3)
  - Acute kidney injury [Unknown]
  - Cardiac amyloidosis [Unknown]
  - Cardiac failure [Unknown]
